FAERS Safety Report 17315321 (Version 2)
Quarter: 2020Q1

REPORT INFORMATION
  Report Type: Spontaneous
  Country: US (occurrence: US)
  Receive Date: 20200124
  Receipt Date: 20200212
  Transmission Date: 20200409
  Serious: No
  Sender: FDA-Public Use
  Company Number: US-VERTEX PHARMACEUTICALS-2020-000823

PATIENT
  Age: 22 Year
  Sex: Female
  Weight: 47 kg

DRUGS (4)
  1. PROGRAF [Concomitant]
     Active Substance: TACROLIMUS
  2. TRIKAFTA [Suspect]
     Active Substance: ELEXACAFTOR\IVACAFTOR\TEZACAFTOR
     Indication: CYSTIC FIBROSIS
     Dosage: 100MG ELEXACAFTOR/50MG TEZACAFTOR/75MG IVACAFTOR AND 150MG IVACAFTOR, BID
     Route: 048
     Dates: start: 20200106
  3. CEPHALEXIN [CEFALEXIN] [Concomitant]
     Active Substance: CEPHALEXIN
  4. DOXYCYCLINE HYCLATE. [Concomitant]
     Active Substance: DOXYCYCLINE HYCLATE

REACTIONS (2)
  - Vomiting [Recovering/Resolving]
  - Gastroenteritis viral [Recovering/Resolving]

NARRATIVE: CASE EVENT DATE: 20200112
